FAERS Safety Report 9311924 (Version 1)
Quarter: 2013Q2

REPORT INFORMATION
  Report Type: Report from Study
  Country: VE (occurrence: VE)
  Receive Date: 20130528
  Receipt Date: 20130528
  Transmission Date: 20140414
  Serious: Yes (Hospitalization, Other)
  Sender: FDA-Public Use
  Company Number: PHHY2013VE052579

PATIENT
  Age: 81 Year
  Sex: Female

DRUGS (1)
  1. ACLASTA [Suspect]
     Indication: OSTEOPOROSIS
     Dosage: UNK ANUALLY
     Route: 042
     Dates: start: 20121110

REACTIONS (5)
  - Gastrointestinal disorder [Recovering/Resolving]
  - Nervous system disorder [Recovering/Resolving]
  - Mental disorder [Recovering/Resolving]
  - Parasitic gastroenteritis [Not Recovered/Not Resolved]
  - Pain [Not Recovered/Not Resolved]
